FAERS Safety Report 24042109 (Version 2)
Quarter: 2024Q3

REPORT INFORMATION
  Report Type: Spontaneous
  Country: JP (occurrence: JP)
  Receive Date: 20240702
  Receipt Date: 20240721
  Transmission Date: 20241017
  Serious: Yes (Other)
  Sender: AEGERION
  Company Number: JP-AMRYT PHARMACEUTICALS DAC-AEGR005146

PATIENT

DRUGS (15)
  1. JUXTAPID [Suspect]
     Active Substance: LOMITAPIDE MESYLATE
     Indication: Type IIa hyperlipidaemia
     Dosage: 5 MILLIGRAM, QD TWO HOURS AFTER DINNER
     Route: 048
     Dates: start: 20200319, end: 20200504
  2. JUXTAPID [Suspect]
     Active Substance: LOMITAPIDE MESYLATE
     Indication: Hypercholesterolaemia
     Dosage: 5 MILLIGRAM, QD (TWO HOURS AFTER DINNER)
     Route: 048
     Dates: start: 20200514
  3. JUXTAPID [Suspect]
     Active Substance: LOMITAPIDE MESYLATE
     Dosage: 10 MILLIGRAM, QD (TWO HOURS AFTER DINNER)
     Route: 048
     Dates: start: 20200611
  4. JUXTAPID [Suspect]
     Active Substance: LOMITAPIDE MESYLATE
     Dosage: 20 MILLIGRAM, QD (TWO HOURS AFTER DINNER)
     Route: 048
     Dates: start: 20200709
  5. JUXTAPID [Suspect]
     Active Substance: LOMITAPIDE MESYLATE
     Dosage: 20 MILLIGRAM, QD (TWO HOURS AFTER DINNER)
     Route: 048
     Dates: start: 20201217
  6. JUXTAPID [Suspect]
     Active Substance: LOMITAPIDE MESYLATE
     Dosage: 25 MILLIGRAM, QD (TWO HOURS AFTER DINNER)
     Route: 048
     Dates: start: 20210114
  7. JUXTAPID [Suspect]
     Active Substance: LOMITAPIDE MESYLATE
     Dosage: 25 MILLIGRAM, QD
     Route: 048
     Dates: start: 20210118, end: 20210314
  8. JUXTAPID [Suspect]
     Active Substance: LOMITAPIDE MESYLATE
     Dosage: 20 MILLIGRAM, QD (TWO HOURS AFTER DINNER)
     Route: 048
     Dates: start: 20210311
  9. JUXTAPID [Suspect]
     Active Substance: LOMITAPIDE MESYLATE
     Dosage: 20 MILLIGRAM, QD
     Route: 048
     Dates: start: 20210315
  10. JUXTAPID [Suspect]
     Active Substance: LOMITAPIDE MESYLATE
     Dosage: 20 MILLIGRAM, QD (TWO HOURS AFTER DINNER)
     Route: 048
     Dates: start: 20220317
  11. JUXTAPID [Suspect]
     Active Substance: LOMITAPIDE MESYLATE
     Dosage: 15 MILLIGRAM, QD (TWO HOURS AFTER DINNER)
     Route: 048
     Dates: start: 20230921
  12. JUXTAPID [Suspect]
     Active Substance: LOMITAPIDE MESYLATE
     Dosage: 15 MILLIGRAM, QD
     Route: 048
  13. ROSUVASTATIN [Concomitant]
     Active Substance: ROSUVASTATIN
     Indication: Hypercholesterolaemia
     Dosage: 20 MILLIGRAM, BID
     Route: 048
  14. ZETIA [Concomitant]
     Active Substance: EZETIMIBE
     Indication: Hypercholesterolaemia
     Dosage: 20 MILLIGRAM, BID
     Route: 048
  15. REPATHA [Concomitant]
     Active Substance: EVOLOCUMAB
     Indication: Hypercholesterolaemia
     Dosage: 420MG/2 WEEKS
     Route: 048

REACTIONS (5)
  - Liver function test increased [Unknown]
  - Abdominal pain [Recovered/Resolved]
  - Abdominal pain [Recovered/Resolved]
  - Nausea [Recovered/Resolved]
  - Therapeutic product effect incomplete [Unknown]

NARRATIVE: CASE EVENT DATE: 20210316
